FAERS Safety Report 24601777 (Version 1)
Quarter: 2024Q4

REPORT INFORMATION
  Report Type: Spontaneous
  Country: ES (occurrence: ES)
  Receive Date: 20241111
  Receipt Date: 20241111
  Transmission Date: 20250115
  Serious: Yes (Death, Hospitalization)
  Sender: ACCORD
  Company Number: None

PATIENT
  Age: 92 Year
  Sex: Female

DRUGS (1)
  1. FUROSEMIDE [Suspect]
     Active Substance: FUROSEMIDE
     Indication: Hypernatraemia
     Dates: start: 20240916, end: 20240917

REACTIONS (4)
  - Hypernatraemia [Fatal]
  - Drug ineffective [Fatal]
  - Somnolence [Fatal]
  - Product selection error [Recovered/Resolved]

NARRATIVE: CASE EVENT DATE: 20240916
